FAERS Safety Report 11881718 (Version 5)
Quarter: 2018Q4

REPORT INFORMATION
  Report Type: Spontaneous
  Country: US (occurrence: US)
  Receive Date: 20151231
  Receipt Date: 20181129
  Transmission Date: 20190204
  Serious: Yes (Hospitalization)
  Sender: FDA-Public Use
  Company Number: US-PFIZER INC-2015467467

PATIENT
  Age: 65 Year
  Sex: Female

DRUGS (5)
  1. LEVOTIRON [Concomitant]
     Active Substance: LEVOTHYROXINE SODIUM
     Dosage: UNK
  2. CELEBREX [Concomitant]
     Active Substance: CELECOXIB
     Dosage: UNK
  3. LYRICA [Suspect]
     Active Substance: PREGABALIN
     Indication: MULTIPLE SCLEROSIS
     Dosage: 300 MG, 3X/DAY
  4. LYRICA [Suspect]
     Active Substance: PREGABALIN
     Indication: PAIN IN EXTREMITY
     Dosage: 200 MG, 3X/DAY
  5. TRAMADOL. [Concomitant]
     Active Substance: TRAMADOL
     Dosage: UNK

REACTIONS (9)
  - Burning sensation [Unknown]
  - Overdose [Unknown]
  - Withdrawal syndrome [Unknown]
  - Disease recurrence [Unknown]
  - Grip strength decreased [Unknown]
  - Pain in extremity [Unknown]
  - Product dose omission [Unknown]
  - Paraesthesia [Unknown]
  - Reading disorder [Unknown]
